FAERS Safety Report 7610512-5 (Version None)
Quarter: 2011Q3

REPORT INFORMATION
  Report Type: 
  Country: None (occurrence: None)
  Receive Date: 20110715
  Receipt Date: 20091130
  Transmission Date: 20111222
  Serious: Yes (Death, Other)
  Sender: FDA-Public Use
  Company Number: US-BAYER-200941256NA

PATIENT
  Age: 79 Year
  Sex: Female
  Weight: 75 kg

DRUGS (20)
  1. TRASYLOL [Suspect]
     Indication: CORONARY ARTERY BYPASS
     Dosage: 50 ML PER HOUR INFUSION
     Route: 042
     Dates: start: 20070917, end: 20070917
  2. ZINACEF [Concomitant]
     Dosage: 1.5 GM
     Route: 042
     Dates: start: 20070917, end: 20070917
  3. PRECEDEX [Concomitant]
     Dosage: 0.2 MCG/KG/HR
     Route: 042
     Dates: start: 20070917, end: 20070917
  4. ACETYLSALICYLIC ACID SRT [Concomitant]
     Dosage: 81 MG, QD
     Route: 048
  5. LORTAB [Concomitant]
     Dosage: AS NEEDED
     Route: 048
  6. MAGNESIUM [Concomitant]
     Dosage: 2.5 GM
     Route: 042
     Dates: start: 20070917, end: 20070917
  7. BENAZEPRIL HYDROCHLORIDE [Concomitant]
     Dosage: 20/25 MG DAILY
     Route: 048
     Dates: end: 20070913
  8. VERSED [Concomitant]
     Dosage: 1 MG
     Route: 042
     Dates: start: 20070917, end: 20070917
  9. NITROGLYCERIN [Concomitant]
     Dosage: AS NEEDED
     Route: 060
  10. SIMVASTATIN [Concomitant]
     Dosage: 80 MG, QD
     Route: 048
  11. ATENOLOL [Concomitant]
     Dosage: 25 MG, QD
     Route: 048
  12. ZOLOFT [Concomitant]
     Dosage: 25 MG, QD
     Route: 048
  13. HEPARIN [Concomitant]
     Dosage: 25,000 UNITS
     Route: 042
     Dates: start: 20070917, end: 20070917
  14. TRASYLOL [Suspect]
     Indication: PRODUCT USED FOR UNKNOWN INDICATION
     Dosage: 200 ML
     Route: 042
     Dates: start: 20070917, end: 20070917
  15. IMDUR [Concomitant]
     Dosage: 30 MG, QD
     Route: 048
  16. ETOMIDATE [Concomitant]
     Dosage: 20 MG
     Route: 042
     Dates: start: 20070917, end: 20070917
  17. SODIUM BICARBONATE [Concomitant]
     Dosage: 50 MEQ X 2
     Route: 042
     Dates: start: 20070917, end: 20070917
  18. MAGNESIUM [Concomitant]
     Dosage: 4 GM
     Route: 042
     Dates: start: 20070917, end: 20070917
  19. RED BLOOD CELLS [Concomitant]
     Dosage: 2 U, ONCE
     Route: 042
     Dates: start: 20070917
  20. NITROGLYCERIN [Concomitant]
     Dosage: TITRATED
     Route: 042
     Dates: start: 20070917

REACTIONS (13)
  - MULTI-ORGAN FAILURE [None]
  - RENAL FAILURE [None]
  - ANXIETY [None]
  - PAIN [None]
  - EMOTIONAL DISTRESS [None]
  - STRESS [None]
  - UNEVALUABLE EVENT [None]
  - DEATH [None]
  - ANHEDONIA [None]
  - INJURY [None]
  - RENAL INJURY [None]
  - RENAL IMPAIRMENT [None]
  - FEAR [None]
